FAERS Safety Report 20384486 (Version 1)
Quarter: 2022Q1

REPORT INFORMATION
  Report Type: Report from Study
  Country: AR (occurrence: AR)
  Receive Date: 20220127
  Receipt Date: 20220127
  Transmission Date: 20220423
  Serious: Yes (Other)
  Sender: FDA-Public Use
  Company Number: AR-TAKEDA-2022TUS005329

PATIENT
  Sex: Male

DRUGS (1)
  1. VELAGLUCERASE ALFA [Suspect]
     Active Substance: VELAGLUCERASE ALFA
     Indication: Gaucher^s disease
     Dosage: 7 DOSAGE FORM, Q2WEEKS
     Route: 065
     Dates: start: 20210527

REACTIONS (2)
  - COVID-19 [Recovered/Resolved]
  - Inappropriate schedule of product administration [Unknown]
